FAERS Safety Report 9928870 (Version 2)
Quarter: 2014Q1

REPORT INFORMATION
  Report Type: Report from Study
  Country: JP (occurrence: JP)
  Receive Date: 20140227
  Receipt Date: 20140305
  Transmission Date: 20141002
  Serious: Yes (Other)
  Sender: FDA-Public Use
  Company Number: JP-SA-2014SA024589

PATIENT
  Sex: 0

DRUGS (3)
  1. OXALIPLATIN [Suspect]
     Indication: COLORECTAL CANCER METASTATIC
     Route: 065
  2. CAPECITABINE [Suspect]
     Indication: COLORECTAL CANCER METASTATIC
     Route: 048
  3. BEVACIZUMAB [Concomitant]
     Indication: COLORECTAL CANCER METASTATIC
     Dosage: 30 TO 90 MIN INTRAVENOUS INFUSION BEFORE OXALIPLATIN ON DAY 1

REACTIONS (1)
  - Amylase abnormal [Unknown]
